FAERS Safety Report 5822095-0 (Version None)
Quarter: 2008Q3

REPORT INFORMATION
  Report Type: 
  Country: None (occurrence: None)
  Receive Date: 20080722
  Receipt Date: 20080722
  Transmission Date: 20090109
  Serious: Yes (Other)
  Sender: FDA-Public Use
  Company Number: None

PATIENT
  Age: 56 Year
  Sex: Male
  Weight: 103.4201 kg

DRUGS (1)
  1. GENERIC CALAN SR 240 CALAN SR [Suspect]
     Indication: HYPERTENSION
     Dosage: ONCE DLY 1 MO APPROX 6 YRS AGO

REACTIONS (2)
  - FEELING ABNORMAL [None]
  - PHARMACEUTICAL PRODUCT COMPLAINT [None]
